FAERS Safety Report 7733885-1 (Version None)
Quarter: 2011Q3

REPORT INFORMATION
  Report Type: 
  Country: None (occurrence: None)
  Receive Date: 20110907
  Receipt Date: 20110726
  Transmission Date: 20111222
  Serious: No
  Sender: FDA-Public Use
  Company Number: US-BAYER-2011-067230

PATIENT
  Sex: Female

DRUGS (3)
  1. ALEVE (CAPLET) [Suspect]
     Indication: HEADACHE
     Route: 048
  2. ACETAMINOPHEN [Concomitant]
  3. ADVIL LIQUI-GELS [Concomitant]

REACTIONS (2)
  - HYPOAESTHESIA ORAL [None]
  - ORAL DISCOMFORT [None]
